FAERS Safety Report 4550590-3 (Version None)
Quarter: 2004Q4

REPORT INFORMATION
  Report Type: 
  Country: None (occurrence: None)
  Receive Date: 20041227
  Receipt Date: 20041108
  Transmission Date: 20050328
  Serious: No
  Sender: FDA-Public Use
  Company Number: 04P-163-0279946-00

PATIENT
  Age: 72 Year
  Sex: Female
  Weight: 58.0604 kg

DRUGS (5)
  1. HUMIRA [Suspect]
     Indication: RHEUMATOID ARTHRITIS
     Dosage: 40 MG, 1 IN 2 WK, SUBCUTANEOUS
     Route: 058
     Dates: start: 20040301
  2. PREDNISONE [Concomitant]
  3. PAMIDRONATE DISODIUM [Concomitant]
  4. NAPROXEN SODIUM [Concomitant]
  5. CALCIUM CARBONATE [Concomitant]

REACTIONS (7)
  - ASTHENIA [None]
  - BACK PAIN [None]
  - CHEST PAIN [None]
  - DIZZINESS [None]
  - HEADACHE [None]
  - HYPERHIDROSIS [None]
  - NAUSEA [None]
